FAERS Safety Report 12391472 (Version 5)
Quarter: 2016Q4

REPORT INFORMATION
  Report Type: Report from Study
  Country: JP (occurrence: JP)
  Receive Date: 20160521
  Receipt Date: 20161028
  Transmission Date: 20170207
  Serious: Yes (Death, Hospitalization, Other)
  Sender: FDA-Public Use
  Company Number: JP-AMGEN-JPNCT2016065197

PATIENT
  Age: 59 Year
  Sex: Male
  Weight: 109 kg

DRUGS (10)
  1. 5-FU                               /00098801/ [Suspect]
     Active Substance: FLUOROURACIL
     Dosage: 2400 MG/M2, Q2WEEKS
     Route: 041
     Dates: start: 20160427, end: 20160511
  2. CALCIUM LEVOFOLINATE [Concomitant]
     Active Substance: LEVOLEUCOVORIN CALCIUM
     Indication: RECTAL CANCER
     Dosage: 200 MG/M2, Q2WEEKS
     Route: 041
     Dates: start: 20160323, end: 20160406
  3. PANITUMUMAB [Suspect]
     Active Substance: PANITUMUMAB
     Indication: METASTASES TO LIVER
     Dosage: 6 MG/KG, Q2WK
     Route: 041
     Dates: start: 20160427, end: 20160511
  4. OXALIPLATIN. [Suspect]
     Active Substance: OXALIPLATIN
     Indication: RECTAL CANCER
     Dosage: 85 MG/M2, Q2WEEKS
     Route: 041
     Dates: start: 20160323, end: 20160406
  5. OXALIPLATIN. [Suspect]
     Active Substance: OXALIPLATIN
     Indication: METASTASES TO LIVER
     Dosage: 85 MG/M2, Q2WEEKS
     Route: 041
     Dates: start: 20160427, end: 20160511
  6. PANITUMUMAB [Suspect]
     Active Substance: PANITUMUMAB
     Indication: RECTAL CANCER
     Dosage: 6 MG/KG, Q2WK
     Route: 041
     Dates: start: 20160323, end: 20160406
  7. 5-FU                               /00098801/ [Suspect]
     Active Substance: FLUOROURACIL
     Indication: RECTAL CANCER
     Dosage: 400 MG/M2, Q2WK
     Route: 040
     Dates: start: 20160323, end: 20160406
  8. 5-FU                               /00098801/ [Suspect]
     Active Substance: FLUOROURACIL
     Indication: METASTASES TO LIVER
     Dosage: 2400 MG/M2, Q2WEEKS
     Route: 041
     Dates: start: 20160323, end: 20160406
  9. CALCIUM LEVOFOLINATE [Concomitant]
     Active Substance: LEVOLEUCOVORIN CALCIUM
     Indication: METASTASES TO LIVER
     Dosage: 200 MG/M2, Q2WEEKS
     Route: 041
     Dates: start: 20160427, end: 20160511
  10. 5-FU                               /00098801/ [Suspect]
     Active Substance: FLUOROURACIL
     Dosage: 400 MG/M2, Q2WK
     Route: 040
     Dates: start: 20160427, end: 20160511

REACTIONS (3)
  - Cellulitis [Fatal]
  - Nasopharyngitis [Recovered/Resolved]
  - Neutropenia [Not Recovered/Not Resolved]

NARRATIVE: CASE EVENT DATE: 20160420
